FAERS Safety Report 7508668-8 (Version None)
Quarter: 2011Q2

REPORT INFORMATION
  Report Type: 
  Country: None (occurrence: None)
  Receive Date: 20110527
  Receipt Date: 20100517
  Transmission Date: 20111010
  Serious: No
  Sender: FDA-Public Use
  Company Number: A0860012A

PATIENT
  Age: 85 Year
  Sex: Female

DRUGS (9)
  1. NEXIUM [Concomitant]
  2. CENTRUM SILVER [Concomitant]
  3. ACETAMINOPHEN [Concomitant]
  4. LIPITOR [Concomitant]
  5. VENTOLIN [Suspect]
     Indication: ASTHMA
     Dosage: 1PUFF FOUR TIMES PER DAY
     Route: 055
     Dates: start: 20100513
  6. GABAPENTIN [Concomitant]
  7. TRAMADOL HCL [Concomitant]
  8. ZETIA [Concomitant]
  9. CALCIUM CARBONATE [Concomitant]

REACTIONS (2)
  - DRUG INEFFECTIVE [None]
  - PRODUCT QUALITY ISSUE [None]
